FAERS Safety Report 5123532-X (Version None)
Quarter: 2006Q4

REPORT INFORMATION
  Report Type: 
  Country: None (occurrence: None)
  Receive Date: 20061010
  Receipt Date: 20061004
  Transmission Date: 20070319
  Serious: Yes (Death)
  Sender: FDA-Public Use
  Company Number: PHEH2006US12562

PATIENT
  Age: 82 Year
  Sex: Female

DRUGS (1)
  1. DIOVAN [Suspect]
     Indication: HYPERTENSION
     Dates: start: 20060921

REACTIONS (5)
  - ACUTE MYOCARDIAL INFARCTION [None]
  - ARTERIAL OCCLUSIVE DISEASE [None]
  - CATHETERISATION CARDIAC [None]
  - INTRA-AORTIC BALLOON PLACEMENT [None]
  - STENT PLACEMENT [None]
